FAERS Safety Report 8551492-8 (Version None)
Quarter: 2012Q3

REPORT INFORMATION
  Report Type: 
  Country: None (occurrence: None)
  Receive Date: 20120723
  Receipt Date: 20120723
  Transmission Date: 20120928
  Serious: Yes (Other)
  Sender: FDA-Public Use
  Company Number: None

PATIENT
  Age: 37 Year
  Sex: Female
  Weight: 75.2971 kg

DRUGS (1)
  1. LYBREL [Suspect]
     Dosage: 1 TABLET DAILY PO
     Route: 048

REACTIONS (3)
  - OESTROGEN DEFICIENCY [None]
  - ANDROGEN DEFICIENCY [None]
  - ATROPHIC VULVOVAGINITIS [None]
